FAERS Safety Report 16688333 (Version 1)
Quarter: 2019Q3

REPORT INFORMATION
  Report Type: Spontaneous
  Country: PL (occurrence: PL)
  Receive Date: 20190809
  Receipt Date: 20190809
  Transmission Date: 20191004
  Serious: Yes (Other)
  Sender: FDA-Public Use
  Company Number: PL-PFIZER INC-2019336018

PATIENT
  Age: 65 Year
  Sex: Male
  Weight: 94 kg

DRUGS (8)
  1. BIOPRAZOL [Concomitant]
     Dosage: 1 DF, 1X/DAY
  2. SUTENT [Suspect]
     Active Substance: SUNITINIB MALATE
     Indication: RENAL CANCER
     Dosage: 50 MG, 1X/DAY
     Route: 048
     Dates: start: 20150330
  3. TERTENSIF [Concomitant]
     Active Substance: INDAPAMIDE
     Dosage: 1 DF, 1X/DAY
  4. ACARD [Concomitant]
     Active Substance: ASPIRIN
     Dosage: 1 DF, 1X/DAY
  5. AMLOZEK [Concomitant]
     Active Substance: AMLODIPINE BESYLATE
     Dosage: 1 DF, 1X/DAY
  6. LORATADINE. [Concomitant]
     Active Substance: LORATADINE
     Dosage: 1 DF, 1X/DAY
  7. NEBIVOLEK [Concomitant]
     Dosage: 1 DF, 1X/DAY
  8. POLTRAM COMBO [Concomitant]
     Active Substance: ACETAMINOPHEN\TRAMADOL HYDROCHLORIDE
     Dosage: 1 DF, 1X/DAY

REACTIONS (7)
  - Decreased appetite [Recovered/Resolved]
  - Thrombocytopenia [Recovered/Resolved]
  - Renal failure [Recovered/Resolved]
  - Leukopenia [Recovered/Resolved]
  - Neutropenia [Recovered/Resolved]
  - Hypertension [Recovered/Resolved]
  - Eye irritation [Recovered/Resolved]

NARRATIVE: CASE EVENT DATE: 20150330
